FAERS Safety Report 5147847-4 (Version None)
Quarter: 2006Q4

REPORT INFORMATION
  Report Type: 
  Country: None (occurrence: None)
  Receive Date: 20060918
  Receipt Date: 20050922
  Transmission Date: 20070319
  Serious: Yes (Other)
  Sender: FDA-Public Use
  Company Number: US-JNJFOC-020050706188

PATIENT
  Age: 41 Year
  Sex: Female
  Weight: 69.5818 kg

DRUGS (1)
  1. TOPAMAX [Suspect]
     Indication: NEUROPATHY
     Dosage: SEE IMAGE
     Route: 048

REACTIONS (4)
  - COGNITIVE DISORDER [None]
  - MOVEMENT DISORDER [None]
  - PAIN IN EXTREMITY [None]
  - ROAD TRAFFIC ACCIDENT [None]
